FAERS Safety Report 6285803-3 (Version None)
Quarter: 2009Q3

REPORT INFORMATION
  Report Type: 
  Country: None (occurrence: None)
  Receive Date: 20090728
  Receipt Date: 20090717
  Transmission Date: 20100115
  Serious: Yes (Hospitalization)
  Sender: FDA-Public Use
  Company Number: US-BIOGENIDEC-2009BI000265

PATIENT
  Age: 42 Year
  Sex: Female
  Weight: 101 kg

DRUGS (1)
  1. TYSABRI [Suspect]
     Indication: MULTIPLE SCLEROSIS
     Route: 042
     Dates: start: 20070801, end: 20090606

REACTIONS (9)
  - APPENDICITIS [None]
  - BREAST ENLARGEMENT [None]
  - CONTUSION [None]
  - DIZZINESS [None]
  - DRUG HYPERSENSITIVITY [None]
  - FALL [None]
  - MUSCLE SPASTICITY [None]
  - MUSCLE TIGHTNESS [None]
  - POSTOPERATIVE WOUND INFECTION [None]
